FAERS Safety Report 7039021-1 (Version None)
Quarter: 2010Q4

REPORT INFORMATION
  Report Type: 
  Country: None (occurrence: None)
  Receive Date: 20101012
  Receipt Date: 20101011
  Transmission Date: 20110411
  Serious: Yes (Life-Threatening)
  Sender: FDA-Public Use
  Company Number: JP-BRACCO-003482

PATIENT
  Sex: Female

DRUGS (2)
  1. IOPAMIDOL [Suspect]
     Indication: PULMONARY ARTERIOVENOUS FISTULA
     Dosage: 2.0 ML/SEC
     Route: 042
     Dates: start: 20100219, end: 20100219
  2. IOPAMIDOL [Suspect]
     Indication: COMPUTERISED TOMOGRAM
     Dosage: 2.0 ML/SEC
     Route: 042
     Dates: start: 20100219, end: 20100219

REACTIONS (1)
  - CONTRAST MEDIA ALLERGY [None]
